FAERS Safety Report 17978533 (Version 2)
Quarter: 2020Q3

REPORT INFORMATION
  Report Type: Spontaneous
  Country: US (occurrence: US)
  Receive Date: 20200703
  Receipt Date: 20200812
  Transmission Date: 20201103
  Serious: Yes (Other)
  Sender: FDA-Public Use
  Company Number: US-ASTRAZENECA-2020SE83106

PATIENT
  Sex: Male

DRUGS (6)
  1. FENTANYL. [Concomitant]
     Active Substance: FENTANYL
     Indication: PAIN
     Dosage: 25.0MG UNKNOWN
     Route: 023
  2. ADVIL [Concomitant]
     Active Substance: IBUPROFEN
     Dosage: TWO ADVIL TWICE A DAY
  3. BYDUREON [Suspect]
     Active Substance: EXENATIDE
     Indication: DIABETES MELLITUS
     Route: 058
     Dates: start: 2016
  4. LANTUS [Concomitant]
     Active Substance: INSULIN GLARGINE
     Indication: DIABETES MELLITUS
     Dosage: 17USP UNITS DAILY
     Route: 058
  5. BYDUREON BCISE [Suspect]
     Active Substance: EXENATIDE
     Indication: DIABETES MELLITUS
     Route: 058
  6. TYLENOL [Concomitant]
     Active Substance: ACETAMINOPHEN

REACTIONS (8)
  - Device malfunction [Not Recovered/Not Resolved]
  - Cardiomegaly [Unknown]
  - Dyspepsia [Not Recovered/Not Resolved]
  - Paraesthesia [Unknown]
  - Arthritis [Not Recovered/Not Resolved]
  - Angiopathy [Recovering/Resolving]
  - Injection site scar [Not Recovered/Not Resolved]
  - Memory impairment [Recovering/Resolving]
